FAERS Safety Report 23347915 (Version 1)
Quarter: 2023Q4

REPORT INFORMATION
  Report Type: Spontaneous
  Country: BE (occurrence: BE)
  Receive Date: 20231228
  Receipt Date: 20231228
  Transmission Date: 20240110
  Serious: Yes (Death, Hospitalization, Other)
  Sender: FDA-Public Use
  Company Number: BE-SANDOZ-SDZ2023BE015649

PATIENT
  Age: 87 Year
  Sex: Female

DRUGS (6)
  1. FLUCLOXACILLIN [Suspect]
     Active Substance: FLUCLOXACILLIN
     Indication: Staphylococcal infection
     Dosage: 2 G (SIX TIMES A DAY FOR 6 WEEKS)
     Route: 065
  2. ACETAMINOPHEN [Suspect]
     Active Substance: ACETAMINOPHEN
     Indication: Back pain
     Dosage: UNK
     Route: 065
  3. CIPROFLOXACIN [Concomitant]
     Active Substance: CIPROFLOXACIN
     Indication: Urinary tract infection
     Dosage: 1000 MG, QD (500 MG, BID)
     Route: 048
  4. OXYCODONE [Concomitant]
     Active Substance: OXYCODONE
     Indication: Analgesic therapy
     Dosage: UNK
     Route: 065
  5. RIFAMPIN [Concomitant]
     Active Substance: RIFAMPIN
     Indication: Staphylococcal infection
     Dosage: UNK
     Route: 065
  6. TRAMADOL [Concomitant]
     Active Substance: TRAMADOL\TRAMADOL HYDROCHLORIDE
     Indication: Product used for unknown indication
     Dosage: UNK
     Route: 065

REACTIONS (7)
  - Metabolic acidosis [Fatal]
  - Acute kidney injury [Unknown]
  - Labelled drug-drug interaction medication error [Unknown]
  - General physical health deterioration [Not Recovered/Not Resolved]
  - Somnolence [Unknown]
  - Apathy [Unknown]
  - Confusional state [Unknown]
